FAERS Safety Report 10220916 (Version 2)
Quarter: 2014Q3

REPORT INFORMATION
  Report Type: Spontaneous
  Country: US (occurrence: None)
  Receive Date: 20140604
  Receipt Date: 20140728
  Transmission Date: 20150326
  Serious: Yes (Other)
  Sender: FDA-Public Use
  Company Number: 2014-US-006388

PATIENT
  Age: 63 Year
  Sex: Female

DRUGS (2)
  1. CLONAZEPAM. [Suspect]
     Active Substance: CLONAZEPAM
     Indication: PRODUCT USED FOR UNKNOWN INDICATION
  2. XYREM [Suspect]
     Active Substance: SODIUM OXYBATE
     Indication: NARCOLEPSY
     Route: 048
     Dates: start: 200611, end: 200612

REACTIONS (6)
  - Sudden onset of sleep [None]
  - Gait disturbance [None]
  - Nausea [None]
  - Dizziness [None]
  - Breast cancer female [None]
  - Hallucination [None]

NARRATIVE: CASE EVENT DATE: 2012
